FAERS Safety Report 25804944 (Version 2)
Quarter: 2025Q4

REPORT INFORMATION
  Report Type: Spontaneous
  Country: GB (occurrence: GB)
  Receive Date: 20250916
  Receipt Date: 20251008
  Transmission Date: 20260119
  Serious: Yes (Life-Threatening, Hospitalization, Congenital Anomaly, Other)
  Sender: DEXCEL LTD.
  Company Number: None

PATIENT
  Sex: Male

DRUGS (3)
  1. FOLIC ACID [Concomitant]
     Active Substance: FOLIC ACID
     Indication: Vitamin supplementation
  2. OMEPRAZOLE [Suspect]
     Active Substance: OMEPRAZOLE
     Dosage: 20+40MG PER DAY
  3. CALCIUM CARBONATE\SODIUM ALGINATE\SODIUM BICARBONATE [Suspect]
     Active Substance: CALCIUM CARBONATE\SODIUM ALGINATE\SODIUM BICARBONATE
     Indication: Gastrooesophageal reflux disease
     Dosage: SOMETIMES UP TO 400ML PER DAY

REACTIONS (6)
  - Foetal exposure during pregnancy [Unknown]
  - Maternal exposure during breast feeding [Unknown]
  - Multiple allergies [Not Recovered/Not Resolved]
  - Vomiting [Recovered/Resolved]
  - Rash [Recovered/Resolved]
  - Eczema [Recovered/Resolved]
